FAERS Safety Report 4775760-0 (Version None)
Quarter: 2005Q3

REPORT INFORMATION
  Report Type: 
  Country: None (occurrence: None)
  Receive Date: 20050921
  Receipt Date: 20050908
  Transmission Date: 20060218
  Serious: Yes (Hospitalization)
  Sender: FDA-Public Use
  Company Number: 2005114282

PATIENT
  Age: 2 Year
  Sex: Female
  Weight: 10.5 kg

DRUGS (1)
  1. COLLOMACK (GERMANY) (SALICYLIC ACID) [Suspect]
     Indication: ACCIDENTAL EXPOSURE
     Dosage: 2/3 OF A BOTTLE ONCE, ORAL
     Route: 048
     Dates: start: 20050808, end: 20050808

REACTIONS (9)
  - ABDOMINAL TENDERNESS [None]
  - ACCIDENTAL DRUG INTAKE BY CHILD [None]
  - CAUSTIC INJURY [None]
  - GASTRITIS EROSIVE [None]
  - LEUKOCYTOSIS [None]
  - MUCOSAL DISCOLOURATION [None]
  - MUCOUS MEMBRANE DISORDER [None]
  - ORAL INTAKE REDUCED [None]
  - TONGUE COATED [None]
